FAERS Safety Report 5167712-6 (Version None)
Quarter: 2006Q4

REPORT INFORMATION
  Report Type: 
  Country: None (occurrence: None)
  Receive Date: 20061208
  Receipt Date: 20050926
  Transmission Date: 20070319
  Serious: Yes (Other)
  Sender: FDA-Public Use
  Company Number: PHEH2005US10693

PATIENT
  Age: 56 Year
  Sex: Female
  Weight: 117.46 kg

DRUGS (38)
  1. TRISENOX [Concomitant]
     Dates: start: 20020901, end: 20021201
  2. PAMELOR [Concomitant]
     Indication: DEPRESSION
     Dosage: 10 MG, QHS
     Route: 048
     Dates: start: 19981001
  3. VERAPAMIL [Concomitant]
     Indication: HYPERTENSION
     Dosage: 80 MG, Q8H
     Route: 048
     Dates: start: 19950801
  4. DEXAMETHASONE [Concomitant]
     Indication: CHEMOTHERAPY
     Dosage: 40 MG, QD
     Route: 048
     Dates: start: 19991119
  5. ZOLOFT [Concomitant]
     Indication: DEPRESSION
     Dosage: 100 MG, QD
     Dates: start: 19991101
  6. ATIVAN [Concomitant]
     Indication: ANXIETY
     Dosage: UNK, PRN
     Dates: start: 19991101
  7. TRAZODONE HCL [Concomitant]
     Dosage: 50 MG, QHS
     Route: 048
     Dates: start: 20020404
  8. NEUPOGEN [Concomitant]
     Dates: start: 19991111
  9. ACLOVIR [Concomitant]
     Indication: PROPHYLAXIS
  10. LEVOFLOXACIN [Concomitant]
     Indication: PROPHYLAXIS
  11. FLUCONAZOLE [Concomitant]
     Indication: PROPHYLAXIS
  12. VINCRISTINE + ADRIAMYCIN + DEXAMETHASONE [Concomitant]
     Indication: MULTIPLE MYELOMA
     Dosage: 0.4MG 4 DAYS Q4WKS
     Route: 042
     Dates: start: 19990405, end: 19990601
  13. CYTOXAN [Concomitant]
     Indication: MULTIPLE MYELOMA
     Dosage: UNK, UNK
     Dates: end: 20000301
  14. CYTOXAN [Concomitant]
     Dates: start: 20001101, end: 20001201
  15. CYTOXAN [Concomitant]
     Dates: start: 20011101, end: 20011101
  16. PLATINOL [Concomitant]
     Dosage: 800 MG QD OVER 4 DAYS
     Route: 042
     Dates: start: 19991101, end: 20000301
  17. ETOPOSIDE [Concomitant]
     Dates: start: 19991101, end: 20000301
  18. ETOPOSIDE [Concomitant]
     Dates: start: 20001101, end: 20001201
  19. ETOPOSIDE [Concomitant]
     Dates: start: 20011101, end: 20011101
  20. DECADRON #1 [Concomitant]
     Dates: start: 19991101, end: 20000301
  21. DECADRON #1 [Concomitant]
     Dates: start: 20011101, end: 20011101
  22. THALIDOMIDE [Concomitant]
     Indication: CHEMOTHERAPY
     Dosage: 400MG WITH DOSE ADJUSTMENT OVER TIME QHS
     Route: 048
     Dates: start: 19991119, end: 20000301
  23. THALIDOMIDE [Concomitant]
     Dates: start: 20020901, end: 20021201
  24. THALIDOMIDE [Concomitant]
     Dates: start: 20030301, end: 20030301
  25. RADIATION  THERAPY TO STERNUM [Concomitant]
     Indication: RADIOTHERAPY
  26. AREDIA [Suspect]
     Indication: MULTIPLE MYELOMA
     Dosage: 90 MG QMOS
     Dates: start: 19980801, end: 20020411
  27. AREDIA [Suspect]
     Dates: end: 20050401
  28. ZOMETA [Suspect]
     Indication: MULTIPLE MYELOMA
     Dosage: 4MG QMOS
     Dates: start: 20020510, end: 20050401
  29. ZOMETA [Suspect]
     Dates: start: 20041115
  30. TUMS [Concomitant]
     Dosage: 2 TABS BID
     Route: 048
     Dates: start: 19981214
  31. PENICILLIN [Concomitant]
     Dosage: 1000 MG, TID
     Route: 048
     Dates: start: 20050408
  32. PENICILLIN [Concomitant]
     Dosage: 500 MG, TID
     Dates: start: 20050408
  33. PENICILLIN [Concomitant]
     Dates: start: 20010201
  34. LORCET-HD [Concomitant]
     Dosage: UNK, PRN
     Route: 048
     Dates: start: 19990405
  35. VELCADE [Concomitant]
     Dosage: 2.6 MG, QW
     Dates: start: 20041115, end: 20051215
  36. VELCADE [Concomitant]
     Dosage: 2.6 MG DAYS1,4,8,11 MONTHLY
     Dates: start: 20030714, end: 20040201
  37. VELCADE [Concomitant]
     Dosage: DAYS 1, 8 EVERY 21 DAYS
     Dates: start: 20041101
  38. ANZEMET [Concomitant]
     Dates: start: 20030101

REACTIONS (27)
  - BRONCHITIS [None]
  - DENTAL TREATMENT [None]
  - DRY SOCKET [None]
  - ENDODONTIC PROCEDURE [None]
  - FIBROSIS [None]
  - HEADACHE [None]
  - HYPOAESTHESIA [None]
  - IMPAIRED HEALING [None]
  - INFLAMMATION [None]
  - JAW DISORDER [None]
  - LIVEDO RETICULARIS [None]
  - MASS [None]
  - NEURALGIA [None]
  - NEUROPATHY [None]
  - ORAL SOFT TISSUE DISORDER [None]
  - OSTEITIS [None]
  - OSTEOMYELITIS [None]
  - OSTEOMYELITIS DRAINAGE [None]
  - OSTEONECROSIS [None]
  - PAIN IN JAW [None]
  - PRODUCTIVE COUGH [None]
  - SPINAL FRACTURE [None]
  - SWELLING [None]
  - SWELLING FACE [None]
  - TOOTH EXTRACTION [None]
  - TOOTHACHE [None]
  - WOUND DRAINAGE [None]
